FAERS Safety Report 6343860-X (Version None)
Quarter: 2009Q3

REPORT INFORMATION
  Report Type: 
  Country: None (occurrence: None)
  Receive Date: 20090908
  Receipt Date: 20090826
  Transmission Date: 20100115
  Serious: Yes (Hospitalization)
  Sender: FDA-Public Use
  Company Number: US-BAYER-200931058NA

PATIENT
  Age: 57 Year
  Sex: Female

DRUGS (1)
  1. REFLUDAN [Suspect]
     Indication: DRUG USE FOR UNKNOWN INDICATION
     Dosage: DOSE WAS CANCELED
     Dates: start: 20090823

REACTIONS (1)
  - HAEMORRHAGE [None]
